FAERS Safety Report 22747085 (Version 5)
Quarter: 2023Q4

REPORT INFORMATION
  Report Type: Report from Study
  Country: TR (occurrence: TR)
  Receive Date: 20230725
  Receipt Date: 20231121
  Transmission Date: 20240110
  Serious: Yes (Life-Threatening, Hospitalization)
  Sender: FDA-Public Use
  Company Number: TR-BAYER-2023A098372

PATIENT
  Age: 79 Year
  Sex: Female
  Weight: 85 kg

DRUGS (7)
  1. FINERENONE [Suspect]
     Active Substance: FINERENONE
     Indication: Left ventricular failure
     Dosage: 20 MG, ACTIVE TREATMENT
     Route: 048
     Dates: start: 20210324, end: 20210624
  2. FINERENONE [Suspect]
     Active Substance: FINERENONE
     Indication: Left ventricular failure
     Dosage: 20 MG, ACTIVE TREATMENT
     Route: 048
     Dates: start: 20210928, end: 20211217
  3. FINERENONE [Suspect]
     Active Substance: FINERENONE
     Indication: Left ventricular failure
     Dosage: 10 MG, ACTIVE TREATMENT
     Route: 048
     Dates: start: 20211218, end: 20220324
  4. FINERENONE [Suspect]
     Active Substance: FINERENONE
     Indication: Left ventricular failure
     Dosage: 20 MG, ACTIVE TREATMENT
     Route: 048
     Dates: start: 20220325, end: 20221114
  5. FINERENONE [Suspect]
     Active Substance: FINERENONE
     Indication: Left ventricular failure
     Dosage: 40 MG, ACTIVE TREATMENT
     Route: 048
     Dates: start: 20221115, end: 20230711
  6. FINERENONE [Suspect]
     Active Substance: FINERENONE
     Indication: Left ventricular failure
     Dosage: 20 MG
     Route: 048
     Dates: start: 20230810, end: 20231006
  7. FINERENONE [Suspect]
     Active Substance: FINERENONE
     Indication: Left ventricular failure
     Dosage: UNK
     Route: 048
     Dates: start: 20231007

REACTIONS (2)
  - Hyperkalaemia [Recovered/Resolved]
  - Metabolic acidosis [Recovered/Resolved]

NARRATIVE: CASE EVENT DATE: 20230711
